FAERS Safety Report 10560278 (Version 1)
Quarter: 2014Q4

REPORT INFORMATION
  Report Type: Report from Study
  Country: US (occurrence: US)
  Receive Date: 20141103
  Receipt Date: 20141103
  Transmission Date: 20150529
  Serious: Yes (Other)
  Sender: FDA-Public Use
  Company Number: US-SA-2014SA146751

PATIENT
  Age: 48 Year
  Sex: Male

DRUGS (3)
  1. LANTUS SOLOSTAR [Suspect]
     Active Substance: INSULIN GLARGINE
     Indication: DIABETES MELLITUS
     Dosage: DOSE:50 UNIT(S)
     Route: 065
     Dates: start: 2013
  2. SOLOSTAR [Concomitant]
     Active Substance: DEVICE
  3. NOVOLOG [Concomitant]
     Active Substance: INSULIN ASPART
     Dosage: 3-4 TIMES DAILY

REACTIONS (1)
  - Restrictive pulmonary disease [Not Recovered/Not Resolved]

NARRATIVE: CASE EVENT DATE: 2014
